FAERS Safety Report 15363655 (Version 4)
Quarter: 2018Q4

REPORT INFORMATION
  Report Type: Report from Study
  Country: US (occurrence: US)
  Receive Date: 20180907
  Receipt Date: 20181210
  Transmission Date: 20190204
  Serious: Yes (Hospitalization, Other)
  Sender: FDA-Public Use
  Company Number: US-TAKEDA-2018TUS024433

PATIENT
  Sex: Female

DRUGS (2)
  1. PONATINIB [Suspect]
     Active Substance: PONATINIB
     Indication: CHRONIC MYELOID LEUKAEMIA
     Dosage: 45 MG, QD
     Route: 048
     Dates: start: 201805
  2. PONATINIB [Suspect]
     Active Substance: PONATINIB
     Dosage: 30 MG, QD
     Route: 048
     Dates: start: 20180712

REACTIONS (22)
  - Blood glucose abnormal [Unknown]
  - Fall [Unknown]
  - Depression [Unknown]
  - Pain [Unknown]
  - Gait disturbance [Unknown]
  - Affect lability [Unknown]
  - Arthralgia [Unknown]
  - Fatigue [Unknown]
  - Headache [Unknown]
  - Inappropriate schedule of product administration [Unknown]
  - Multiple sclerosis [Unknown]
  - Infection [Unknown]
  - Vision blurred [Unknown]
  - Anxiety [Unknown]
  - Bradycardia [Unknown]
  - Thrombocytopenia [Unknown]
  - Blood pressure abnormal [Unknown]
  - Rash pruritic [Unknown]
  - Visual impairment [Unknown]
  - Dry skin [Unknown]
  - Hypotension [Unknown]
  - Rash [Unknown]
